APPROVED DRUG PRODUCT: KETOPROFEN
Active Ingredient: KETOPROFEN
Strength: 150MG
Dosage Form/Route: CAPSULE, EXTENDED RELEASE;ORAL
Application: A075679 | Product #002
Applicant: MYLAN PHARMACEUTICALS INC
Approved: Feb 20, 2002 | RLD: No | RS: No | Type: DISCN